FAERS Safety Report 20235900 (Version 1)
Quarter: 2021Q4

REPORT INFORMATION
  Report Type: Other
  Country: DE (occurrence: DE)
  Receive Date: 20211228
  Receipt Date: 20211228
  Transmission Date: 20220304
  Serious: Yes (Hospitalization)
  Sender: FDA-Public Use
  Company Number: DE-ADRED-05767-01

PATIENT

DRUGS (3)
  1. OLMESARTAN MEDOXOMIL [Suspect]
     Active Substance: OLMESARTAN MEDOXOMIL
     Indication: Product used for unknown indication
     Dosage: 20 MILLIGRAM, OD (1-0-0-0)
     Route: 048
  2. SIMVASTATIN [Concomitant]
     Active Substance: SIMVASTATIN
     Indication: Product used for unknown indication
     Dosage: 10 MILLIGRAM, OD (10 MILLIGRAM,0-0-1-0)
     Route: 048
  3. LEVOTHYROXINUM NATRICUM [Concomitant]
     Indication: Product used for unknown indication
     Dosage: 100 MICROGRAM, OD (100 MICROGRAM, 1-0-0-0)
     Route: 048

REACTIONS (4)
  - Flank pain [Unknown]
  - Urinary tract infection [Unknown]
  - Pain [Unknown]
  - Abdominal pain [Unknown]
